FAERS Safety Report 8513763-0 (Version None)
Quarter: 2012Q3

REPORT INFORMATION
  Report Type: 
  Country: None (occurrence: None)
  Receive Date: 20120717
  Receipt Date: 20120712
  Transmission Date: 20120928
  Serious: No
  Sender: FDA-Public Use
  Company Number: US-PFIZER INC-2012168074

PATIENT
  Sex: Male
  Weight: 99.7 kg

DRUGS (16)
  1. SUTENT [Suspect]
     Indication: METASTATIC RENAL CELL CARCINOMA
     Dosage: 50 MG, CYCLE FOR 42 DAYS
     Dates: start: 20120618, end: 20120703
  2. CO-Q-10 [Concomitant]
  3. SUTENT [Suspect]
     Indication: METASTASES TO CENTRAL NERVOUS SYSTEM
  4. ASCORBIC ACID [Concomitant]
  5. CALCIUM CITRATE [Concomitant]
  6. ACETAMINOPHEN [Concomitant]
     Indication: SLEEP DISORDER
  7. SUTENT [Suspect]
     Indication: METASTASES TO LUNG
  8. SIMVASTATIN [Concomitant]
  9. DEXAMETHASONE [Concomitant]
     Indication: BRAIN NEOPLASM
     Dosage: 4 MG, 2X/DAY
     Dates: start: 20120525
  10. LOSARTAN [Concomitant]
     Dosage: 25 MG, 1X/DAY
  11. ASPIRIN [Concomitant]
     Dosage: 325 MG, UNK
  12. FISH OIL [Concomitant]
  13. ACETAMINOPHEN [Concomitant]
     Indication: PYREXIA
  14. DEXAMETHASONE [Concomitant]
     Dosage: 2 MG, 1X/DAY
  15. CARVEDILOL [Concomitant]
     Dosage: 3.25 MG, 2X/DAY
  16. ALLOPURINOL [Concomitant]
     Indication: GOUT
     Dosage: 300 MG, UNK

REACTIONS (8)
  - DYSPNOEA [None]
  - GAIT DISTURBANCE [None]
  - NEUROPATHY PERIPHERAL [None]
  - PYREXIA [None]
  - EPISTAXIS [None]
  - ASTHENIA [None]
  - FATIGUE [None]
  - MUSCLE SPASMS [None]
